FAERS Safety Report 10047086 (Version 1)
Quarter: 2014Q1

REPORT INFORMATION
  Report Type: Spontaneous
  Country: US (occurrence: US)
  Receive Date: 20140331
  Receipt Date: 20140331
  Transmission Date: 20141002
  Serious: No
  Sender: FDA-Public Use
  Company Number: US-MYLANLABS-2013S1006411

PATIENT
  Age: 64 Year
  Sex: Male
  Weight: 103.42 kg

DRUGS (18)
  1. FENTANYL TRANSDERMAL SYSTEM [Suspect]
     Indication: PAIN
     Dosage: Q72H
     Route: 062
     Dates: start: 2008
  2. HYDROCORTISONE [Concomitant]
     Route: 048
  3. SIMVASTATIN [Concomitant]
     Route: 048
  4. GLYBURIDE [Concomitant]
     Indication: DIABETES MELLITUS
     Route: 048
  5. FLUOXETINE [Concomitant]
     Route: 048
  6. CARISOPRODOL [Concomitant]
     Route: 048
  7. LYRICA [Concomitant]
  8. CELEBREX [Concomitant]
     Indication: ARTHRITIS
     Route: 048
  9. METFORMIN [Concomitant]
     Route: 048
  10. ASA [Concomitant]
     Route: 048
  11. FIBERCON [Concomitant]
  12. ACIPHEX [Concomitant]
  13. LORATADINE [Concomitant]
     Route: 048
  14. METOPROLOL [Concomitant]
  15. CLOPIDOGREL [Concomitant]
     Route: 048
  16. DULCOLAX /00064401/ [Concomitant]
  17. OXYCODONE [Concomitant]
  18. TRAZODONE [Concomitant]
     Route: 048

REACTIONS (4)
  - Drug ineffective [Not Recovered/Not Resolved]
  - Pain [Not Recovered/Not Resolved]
  - Drug screen negative [Not Recovered/Not Resolved]
  - Inappropriate schedule of drug administration [Recovered/Resolved]
